FAERS Safety Report 19498585 (Version 5)
Quarter: 2021Q3

REPORT INFORMATION
  Report Type: Spontaneous
  Country: US (occurrence: US)
  Receive Date: 20210706
  Receipt Date: 20210902
  Transmission Date: 20211014
  Serious: Yes (Hospitalization)
  Sender: FDA-Public Use
  Company Number: US-KARYOPHARM-2021KPT000867

PATIENT

DRUGS (10)
  1. XPOVIO [Suspect]
     Active Substance: SELINEXOR
     Indication: PLASMA CELL MYELOMA
     Dosage: 100 MG, WEEKLY
     Route: 048
     Dates: start: 20210423
  2. DARZALEX [Concomitant]
     Active Substance: DARATUMUMAB
     Dosage: UNK UNK, MONTHLY
     Dates: start: 201911
  3. XPOVIO [Suspect]
     Active Substance: SELINEXOR
     Dosage: 80 MG, WEEKLY
     Route: 048
  4. METFORMIN [Concomitant]
     Active Substance: METFORMIN HYDROCHLORIDE
  5. DEXAMETHASONE. [Concomitant]
     Active Substance: DEXAMETHASONE
  6. PREDNISONE. [Concomitant]
     Active Substance: PREDNISONE
  7. XPOVIO [Suspect]
     Active Substance: SELINEXOR
     Dosage: 40 MG, WEEKLY
     Route: 048
     Dates: start: 20210506, end: 202107
  8. ATIVAN [Concomitant]
     Active Substance: LORAZEPAM
  9. MELATONIN [Concomitant]
     Active Substance: MELATONIN
  10. VALACYCLOVIR HCL [Concomitant]
     Active Substance: VALACYCLOVIR HYDROCHLORIDE

REACTIONS (16)
  - Haemoglobin decreased [Recovering/Resolving]
  - Dehydration [Unknown]
  - Anxiety [Unknown]
  - Nausea [Unknown]
  - Asthenia [Unknown]
  - Paraesthesia [Unknown]
  - Dizziness [Unknown]
  - Platelet count decreased [Recovering/Resolving]
  - Malnutrition [Unknown]
  - Weight decreased [Unknown]
  - Panic attack [Unknown]
  - Depression [Unknown]
  - Constipation [Unknown]
  - Epistaxis [Unknown]
  - Loss of consciousness [Unknown]
  - Dyspnoea [Unknown]

NARRATIVE: CASE EVENT DATE: 202106
